FAERS Safety Report 8243851-8 (Version None)
Quarter: 2012Q1

REPORT INFORMATION
  Report Type: 
  Country: None (occurrence: None)
  Receive Date: 20120329
  Receipt Date: 20120323
  Transmission Date: 20120608
  Serious: Yes (Other)
  Sender: FDA-Public Use
  Company Number: CA-AMGEN-CANSP2011056243

PATIENT
  Age: 48 Year
  Sex: Female

DRUGS (5)
  1. ENBREL [Suspect]
     Indication: RHEUMATOID ARTHRITIS
     Dosage: 50 MG, QWK
     Dates: start: 20090709
  2. ARTHROTEC [Concomitant]
     Dosage: UNK UNK, PRN
  3. PLAQUENIL [Concomitant]
     Dosage: 200 MG, QD
  4. FOLIC ACID [Concomitant]
     Dosage: UNK UNK, 6 TIMES/WK
  5. METHOTREXATE [Concomitant]
     Dosage: 20 MG, QWK
     Route: 048

REACTIONS (3)
  - LUNG DISORDER [None]
  - LUNG NEOPLASM [None]
  - UPPER RESPIRATORY FUNGAL INFECTION [None]
